FAERS Safety Report 5184544-3 (Version None)
Quarter: 2006Q4

REPORT INFORMATION
  Report Type: 
  Country: None (occurrence: None)
  Receive Date: 20061220
  Receipt Date: 20060314
  Transmission Date: 20070319
  Serious: No
  Sender: FDA-Public Use
  Company Number: US-GLAXOSMITHKLINE-A0597454A

PATIENT
  Age: 36 Year
  Sex: Female

DRUGS (2)
  1. NICODERM CQ [Suspect]
     Dates: start: 20060307, end: 20060313
  2. NICODERM CQ [Suspect]

REACTIONS (3)
  - APPLICATION SITE RASH [None]
  - DYSGEUSIA [None]
  - NICOTINE DEPENDENCE [None]
